FAERS Safety Report 12853892 (Version 1)
Quarter: 2016Q4

REPORT INFORMATION
  Report Type: Report from Study
  Country: IN (occurrence: IN)
  Receive Date: 20161017
  Receipt Date: 20161017
  Transmission Date: 20170207
  Serious: Yes (Death)
  Sender: FDA-Public Use
  Company Number: PHHY2016IN142136

PATIENT
  Age: 89 Year
  Sex: Female
  Weight: 50 kg

DRUGS (3)
  1. EXELON PATCH [Suspect]
     Active Substance: RIVASTIGMINE
     Indication: DEMENTIA ALZHEIMER^S TYPE
     Dosage: 13.3 MG, QD PATCH 15 (CM2)
     Route: 062
  2. ADMENTA [Concomitant]
     Indication: DEMENTIA ALZHEIMER^S TYPE
     Route: 048
  3. OLIMELT [Concomitant]
     Indication: DEMENTIA ALZHEIMER^S TYPE
     Dosage: 2.5 MG, UNK
     Route: 048

REACTIONS (2)
  - Overweight [Unknown]
  - Death [Fatal]

NARRATIVE: CASE EVENT DATE: 20160628
